FAERS Safety Report 7320305-4 (Version None)
Quarter: 2011Q1

REPORT INFORMATION
  Report Type: 
  Country: None (occurrence: None)
  Receive Date: 20110228
  Receipt Date: 20110111
  Transmission Date: 20110831
  Serious: Yes (Death)
  Sender: FDA-Public Use
  Company Number: CA-CELGENEUS-028-21880-11010900

PATIENT
  Sex: Male

DRUGS (10)
  1. DECADRON [Concomitant]
     Route: 065
  2. ACYCLOVIR [Concomitant]
     Route: 065
  3. COLACE [Concomitant]
     Route: 065
  4. AREDIA [Concomitant]
     Route: 065
  5. ASA [Concomitant]
     Route: 065
  6. MS CONTIN [Concomitant]
     Route: 065
  7. CRESTOR [Concomitant]
     Route: 065
  8. SENOKOT [Concomitant]
     Route: 065
  9. REVLIMID [Suspect]
     Indication: MULTIPLE MYELOMA
     Dosage: 25 MILLIGRAM
     Route: 048
     Dates: start: 20101124
  10. PARIET [Concomitant]
     Route: 065

REACTIONS (1)
  - DEATH [None]
